FAERS Safety Report 8266646-8 (Version None)
Quarter: 2012Q2

REPORT INFORMATION
  Report Type: 
  Country: None (occurrence: None)
  Receive Date: 20120407
  Receipt Date: 20120328
  Transmission Date: 20120825
  Serious: Yes (Other)
  Sender: FDA-Public Use
  Company Number: US-ASTRAZENECA-2012SE20969

PATIENT
  Age: 78 Year
  Sex: Female

DRUGS (2)
  1. PREVACID [Concomitant]
  2. NEXIUM [Suspect]
     Route: 048

REACTIONS (3)
  - MEMORY IMPAIRMENT [None]
  - HELICOBACTER INFECTION [None]
  - CEREBROVASCULAR ACCIDENT [None]
